FAERS Safety Report 9705750 (Version 1)
Quarter: 2013Q4

REPORT INFORMATION
  Report Type: Spontaneous
  Country: US (occurrence: US)
  Receive Date: 20131122
  Receipt Date: 20131122
  Transmission Date: 20140711
  Serious: No
  Sender: FDA-Public Use
  Company Number: US-GILEAD-2008-0018005

PATIENT
  Sex: 0
  Weight: 63.5 kg

DRUGS (8)
  1. LETAIRIS [Suspect]
     Indication: PULMONARY ARTERIAL HYPERTENSION
     Route: 048
     Dates: start: 20080708
  2. ALBUTEROL [Concomitant]
     Dosage: AS DIRECTED
  3. LOTENSIN [Concomitant]
     Dosage: AS DIRECTED
     Route: 048
  4. ADVAIR [Concomitant]
     Dosage: AS DIRECTED
  5. CELEXA [Concomitant]
     Dosage: AS DIRECTED
     Route: 048
  6. ASPIRIN [Concomitant]
     Dosage: AS DIRECTED
     Route: 048
  7. OXYGEN [Concomitant]
     Dosage: AS DIRECTED
  8. ZETIA [Concomitant]
     Dosage: AS DIRECTED
     Route: 048

REACTIONS (1)
  - Gravitational oedema [None]
